FAERS Safety Report 4264778-2 (Version None)
Quarter: 2004Q1

REPORT INFORMATION
  Report Type: 
  Country: None (occurrence: None)
  Receive Date: 20040102
  Receipt Date: 20031219
  Transmission Date: 20041129
  Serious: Yes (Hospitalization)
  Sender: FDA-Public Use
  Company Number: 2003121003

PATIENT
  Age: 41 Year
  Sex: Female
  Weight: 72 kg

DRUGS (1)
  1. VIBRA-TABS [Suspect]
     Indication: ILL-DEFINED DISORDER
     Dosage: 100 MG (DAILY), ORAL
     Route: 048
     Dates: start: 20030604, end: 20030604

REACTIONS (18)
  - BLASTOCYSTIS INFECTION [None]
  - BLOOD IRON DECREASED [None]
  - BLOOD PRESSURE INCREASED [None]
  - BLOOD TRIGLYCERIDES INCREASED [None]
  - DRUG HYPERSENSITIVITY [None]
  - EOSINOPHILIA [None]
  - HAEMOGLOBIN DECREASED [None]
  - HEADACHE [None]
  - HYPERHIDROSIS [None]
  - HYPERTHERMIA [None]
  - LEUKOPENIA [None]
  - MEAN CELL VOLUME DECREASED [None]
  - MYALGIA [None]
  - NEUTROPENIA [None]
  - PELVIC PAIN [None]
  - THROMBOCYTOPENIA [None]
  - TRANSFERRIN INCREASED [None]
  - TRANSFERRIN SATURATION DECREASED [None]
